FAERS Safety Report 8793454 (Version 2)
Quarter: 2013Q1

REPORT INFORMATION
  Report Type: Spontaneous
  Country: US (occurrence: US)
  Receive Date: 20120918
  Receipt Date: 20130301
  Transmission Date: 20140127
  Serious: Yes (Hospitalization)
  Sender: FDA-Public Use
  Company Number: US-BAYER-2012-096321

PATIENT
  Age: 37 Year
  Sex: Female
  Weight: 61.22 kg

DRUGS (5)
  1. YASMIN [Suspect]
     Indication: CONTRACEPTION
     Dosage: UNK
     Dates: start: 20031030, end: 20111219
  2. YAZ [Suspect]
     Indication: CONTRACEPTION
  3. ADVIL [Concomitant]
  4. EXCEDRIN [Concomitant]
  5. MORPHINE [Concomitant]
     Indication: PAIN

REACTIONS (4)
  - Transverse sinus thrombosis [Recovered/Resolved]
  - Pain [Recovered/Resolved]
  - Vascular headache [Recovered/Resolved]
  - Headache [Recovered/Resolved]
